FAERS Safety Report 7721235-6 (Version None)
Quarter: 2011Q3

REPORT INFORMATION
  Report Type: 
  Country: None (occurrence: None)
  Receive Date: 20110830
  Receipt Date: 20110830
  Transmission Date: 20111222
  Serious: Yes (Other)
  Sender: FDA-Public Use
  Company Number: None

PATIENT
  Age: 63 Year
  Sex: Female
  Weight: 70.5 kg

DRUGS (2)
  1. AMOXICILLIN [Suspect]
     Indication: PROPHYLAXIS
     Dosage: AMOXICILLIN 500 MG 3 CAPSULES PER DAY ORAL
     Route: 048
     Dates: start: 20110804, end: 20110811
  2. AMOXICILLIN [Suspect]
     Indication: TOOTH EXTRACTION
     Dosage: AMOXICILLIN 500 MG 3 CAPSULES PER DAY ORAL
     Route: 048
     Dates: start: 20110804, end: 20110811

REACTIONS (6)
  - RASH GENERALISED [None]
  - ABDOMINAL PAIN UPPER [None]
  - NAUSEA [None]
  - MUSCLE SPASMS [None]
  - BURNING SENSATION [None]
  - RASH ERYTHEMATOUS [None]
